FAERS Safety Report 4474603-2 (Version None)
Quarter: 2004Q4

REPORT INFORMATION
  Report Type: 
  Country: None (occurrence: None)
  Receive Date: 20041014
  Receipt Date: 20041005
  Transmission Date: 20050328
  Serious: Yes (Other)
  Sender: FDA-Public Use
  Company Number: PHEH2004US10734

PATIENT
  Age: 47 Year
  Sex: Female

DRUGS (2)
  1. VIVELLE-DOT [Suspect]
     Indication: HORMONE REPLACEMENT THERAPY
     Dosage: .1 MG, TWICE WEEKLY
     Route: 062
     Dates: start: 19960101
  2. VIVELLE-DOT [Suspect]
     Dosage: 0.0375MG, TWICE WEEKLY
     Route: 062
     Dates: start: 19960101

REACTIONS (2)
  - ANAEMIA [None]
  - INTESTINAL ULCER [None]
